FAERS Safety Report 23672707 (Version 5)
Quarter: 2024Q2

REPORT INFORMATION
  Report Type: Spontaneous
  Country: US (occurrence: US)
  Receive Date: 20240326
  Receipt Date: 20240611
  Transmission Date: 20240716
  Serious: No
  Sender: FDA-Public Use
  Company Number: US-PFIZER INC-202400063678

PATIENT
  Age: 15 Year
  Sex: Male
  Weight: 48.08 kg

DRUGS (2)
  1. GENOTROPIN [Suspect]
     Active Substance: SOMATROPIN
     Indication: Growth hormone deficiency
     Dosage: 2 MG, ONCE A DAY IN EVENING ALTERNATE GLUTES; 2.0 MG PER DAY, 7 DAYS PER WEEK
     Route: 058
     Dates: start: 20240306
  2. GENOTROPIN [Suspect]
     Active Substance: SOMATROPIN
     Dosage: 2 MG, ONCE A DAY IN EVENING ALTERNATE GLUTES; 2.0 MG PER DAY, 7 DAYS PER WEEK
     Route: 058

REACTIONS (5)
  - Drug dose omission by device [Unknown]
  - Device use issue [Unknown]
  - Device leakage [Unknown]
  - Device breakage [Unknown]
  - Device malfunction [Unknown]

NARRATIVE: CASE EVENT DATE: 20240312
